FAERS Safety Report 15524425 (Version 4)
Quarter: 2019Q1

REPORT INFORMATION
  Report Type: Spontaneous
  Country: BE (occurrence: BE)
  Receive Date: 20181019
  Receipt Date: 20190108
  Transmission Date: 20190417
  Serious: Yes (Hospitalization, Other)
  Sender: FDA-Public Use
  Company Number: BE-PFIZER INC-2018371758

PATIENT
  Age: 46 Year
  Sex: Female

DRUGS (2)
  1. CISPLATIN. [Suspect]
     Active Substance: CISPLATIN
     Indication: PERITONEAL MESOTHELIOMA MALIGNANT
     Dosage: 50 MG/M2, CYCLIC (HYPERTHERMIC INTRAPERITONEAL CHEMOTHERAPY)
     Route: 033
  2. DOXORUBICIN HCL [Suspect]
     Active Substance: DOXORUBICIN HYDROCHLORIDE
     Indication: PERITONEAL MESOTHELIOMA MALIGNANT
     Dosage: 15 MG/M2, CYCLIC (HYPERTHERMIC INTRAPERITONEAL CHEMOTHERAPY)
     Route: 033

REACTIONS (1)
  - Acute respiratory distress syndrome [Recovering/Resolving]
